FAERS Safety Report 4357992-9 (Version None)
Quarter: 2004Q2

REPORT INFORMATION
  Report Type: 
  Country: None (occurrence: None)
  Receive Date: 20040511
  Receipt Date: 20040503
  Transmission Date: 20050107
  Serious: Yes (Hospitalization, Disabling)
  Sender: FDA-Public Use
  Company Number: A0509172A

PATIENT
  Age: 88 Year
  Sex: Female

DRUGS (4)
  1. CALCIUM CARBONATE TABLET (CALCIUM CARBONATE) [Suspect]
     Indication: ILL-DEFINED DISORDER
     Dosage: AS REQUIRED/ORAL
     Route: 048
  2. GLYBURIDE [Concomitant]
  3. METFORMIN HYDROCHLORIDE [Concomitant]
  4. NAPROXEN SODIUM [Concomitant]

REACTIONS (8)
  - FALL [None]
  - FOOT FRACTURE [None]
  - HAEMORRHAGE [None]
  - HEAD INJURY [None]
  - HIP FRACTURE [None]
  - PELVIC FRACTURE [None]
  - PHARMACEUTICAL PRODUCT COMPLAINT [None]
  - RIB FRACTURE [None]
